FAERS Safety Report 21110645 (Version 1)
Quarter: 2022Q3

REPORT INFORMATION
  Report Type: Spontaneous
  Country: US (occurrence: None)
  Receive Date: 20220720
  Receipt Date: 20220720
  Transmission Date: 20221026
  Serious: No
  Sender: FDA-Public Use
  Company Number: None

PATIENT
  Age: 79 Year
  Sex: Female

DRUGS (1)
  1. JAKAFI [Suspect]
     Active Substance: RUXOLITINIB
     Dosage: FREQUENCY : DAILY;?
     Route: 048

REACTIONS (5)
  - Dyspnoea [None]
  - Headache [None]
  - Pain in extremity [None]
  - Full blood count decreased [None]
  - Oral pain [None]

NARRATIVE: CASE EVENT DATE: 20220719
